FAERS Safety Report 10521858 (Version 1)
Quarter: 2014Q4

REPORT INFORMATION
  Report Type: Spontaneous
  Country: US (occurrence: None)
  Receive Date: 20141014
  Receipt Date: 20141014
  Transmission Date: 20150528
  Serious: Yes (Other)
  Sender: FDA-Public Use
  Company Number: None

PATIENT
  Age: 42 Year
  Sex: Female
  Weight: 48.08 kg

DRUGS (1)
  1. TAPAZOLE [Suspect]
     Active Substance: METHIMAZOLE
     Indication: HYPERTHYROIDISM
     Dosage: 1 TAB
     Route: 048

REACTIONS (1)
  - Anosmia [None]

NARRATIVE: CASE EVENT DATE: 20140901
